FAERS Safety Report 9575106 (Version 2)
Quarter: 2013Q4

REPORT INFORMATION
  Report Type: Spontaneous
  Country: IT (occurrence: IT)
  Receive Date: 20131001
  Receipt Date: 20131008
  Transmission Date: 20140711
  Serious: Yes (Hospitalization)
  Sender: FDA-Public Use
  Company Number: IT-TEVA-434278ISR

PATIENT
  Age: 27 Year
  Sex: Female

DRUGS (1)
  1. PAROXETINA [Suspect]
     Indication: INTENTIONAL SELF-INJURY
     Dosage: 200 MILLIGRAM DAILY;
     Route: 048
     Dates: start: 20130629, end: 20130629

REACTIONS (3)
  - Headache [Recovering/Resolving]
  - Drug abuse [Recovering/Resolving]
  - Intentional self-injury [Unknown]
